FAERS Safety Report 6685709-1 (Version None)
Quarter: 2010Q2

REPORT INFORMATION
  Report Type: 
  Country: None (occurrence: None)
  Receive Date: 20100419
  Receipt Date: 20100409
  Transmission Date: 20101027
  Serious: Yes (Hospitalization)
  Sender: FDA-Public Use
  Company Number: US-BIOGENIDEC-2010BI012347

PATIENT
  Age: 56 Year
  Sex: Female

DRUGS (3)
  1. AVONEX [Suspect]
     Indication: MULTIPLE SCLEROSIS
     Route: 030
     Dates: start: 20000501, end: 20001101
  2. AVONEX [Suspect]
     Route: 030
     Dates: start: 20010101
  3. AVONEX [Suspect]
     Route: 030
     Dates: start: 20100129

REACTIONS (6)
  - ASTHENIA [None]
  - FATIGUE [None]
  - MULTIPLE SCLEROSIS RELAPSE [None]
  - NERVOUSNESS [None]
  - URINARY TRACT INFECTION [None]
  - URINE OUTPUT DECREASED [None]
